FAERS Safety Report 5959019-1 (Version None)
Quarter: 2008Q4

REPORT INFORMATION
  Report Type: 
  Country: None (occurrence: None)
  Receive Date: 20081114
  Receipt Date: 20080723
  Transmission Date: 20090506
  Serious: Yes (Other)
  Sender: FDA-Public Use
  Company Number: PHEH2008US06350

PATIENT
  Age: 49 Year
  Sex: Female
  Weight: 81.6 kg

DRUGS (2)
  1. TEKTURNA HCT [Suspect]
     Dosage: 150MG ALIS/12.5MG HCT
     Dates: start: 20080703, end: 20080715
  2. VITAMINS (NO INGREDIENTS/SUBSTANCES) [Concomitant]

REACTIONS (2)
  - BLOOD PRESSURE INCREASED [None]
  - HEADACHE [None]
